FAERS Safety Report 8545353 (Version 3)
Quarter: 2012Q4

REPORT INFORMATION
  Report Type: Spontaneous
  Country: CA (occurrence: None)
  Receive Date: 20120426
  Receipt Date: 20120829
  Transmission Date: 20130627
  Serious: Yes (Life-Threatening)
  Sender: FDA-Public Use
  Company Number: 1257752

PATIENT
  Age: 44 Year
  Sex: Female
  Weight: 121 kg

DRUGS (4)
  1. PRECEDEX [Suspect]
     Indication: OBSTRUCTIVE SLEEP APNEA SYNDROME
     Dosage: 60 MCG, CONTINUOUS, INTRAVENOUS
     Route: 042
     Dates: start: 20120209
  2. FENTANYL CITRATE [Concomitant]
  3. REMIFENTANIL [Concomitant]
  4. NEXIUM [Concomitant]

REACTIONS (3)
  - Cardiac arrest [None]
  - Bradycardia [None]
  - Procedural complication [None]
